FAERS Safety Report 15654470 (Version 2)
Quarter: 2019Q2

REPORT INFORMATION
  Report Type: Report from Study
  Country: CA (occurrence: CA)
  Receive Date: 20181126
  Receipt Date: 20190402
  Transmission Date: 20190711
  Serious: Yes (Other)
  Sender: FDA-Public Use
  Company Number: CA-ROCHE-2201499

PATIENT
  Age: 54 Year
  Sex: Female

DRUGS (18)
  1. ZOLEDRONIC ACID [Concomitant]
     Active Substance: ZOLEDRONIC ACID
  2. ADVAIR HFA [Concomitant]
     Active Substance: FLUTICASONE PROPIONATE\SALMETEROL XINAFOATE
  3. TRIFLEX (CHONDROITIN SULFATE/GLUCOSAMINE HYDROCHLORIDE/METHYL SULFONYL [Concomitant]
  4. ACTEMRA [Suspect]
     Active Substance: TOCILIZUMAB
     Indication: VASCULITIS
     Route: 058
     Dates: start: 20180904, end: 20181113
  5. MSM [Concomitant]
     Active Substance: DIMETHYL SULFONE
  6. METHOTREXATE. [Concomitant]
     Active Substance: METHOTREXATE
  7. FLONASE [Concomitant]
     Active Substance: FLUTICASONE PROPIONATE
  8. IMOVANE [Concomitant]
     Active Substance: ZOPICLONE
  9. REPLAX (UNK INGREDIENTS) [Concomitant]
     Route: 065
  10. CHONDROITIN [Concomitant]
     Active Substance: CHONDROITIN
  11. CLARITIN [Concomitant]
     Active Substance: LORATADINE
  12. ACTEMRA [Suspect]
     Active Substance: TOCILIZUMAB
     Indication: TEMPORAL ARTERITIS
  13. ALENDRONATE [Concomitant]
     Active Substance: ALENDRONATE SODIUM
  14. ASPIRIN. [Concomitant]
     Active Substance: ASPIRIN
  15. FOLIC ACID. [Concomitant]
     Active Substance: FOLIC ACID
     Indication: APHTHOUS ULCER
  16. PREDNISONE. [Concomitant]
     Active Substance: PREDNISONE
  17. VENTOLIN [Concomitant]
     Active Substance: ALBUTEROL SULFATE
  18. MARIJUANA [Concomitant]
     Active Substance: CANNABIS SATIVA SUBSP. INDICA TOP

REACTIONS (8)
  - Diarrhoea haemorrhagic [Not Recovered/Not Resolved]
  - Blister [Not Recovered/Not Resolved]
  - Skin exfoliation [Not Recovered/Not Resolved]
  - Acne [Not Recovered/Not Resolved]
  - Adverse drug reaction [Unknown]
  - Anal haemorrhage [Unknown]
  - Eyelid exfoliation [Not Recovered/Not Resolved]
  - Ulcer [Not Recovered/Not Resolved]

NARRATIVE: CASE EVENT DATE: 20181015
